FAERS Safety Report 7818168-3 (Version None)
Quarter: 2011Q4

REPORT INFORMATION
  Report Type: 
  Country: None (occurrence: None)
  Receive Date: 20111017
  Receipt Date: 20111004
  Transmission Date: 20120403
  Serious: Yes (Death, Other)
  Sender: FDA-Public Use
  Company Number: US-BAYER-200940554NA

PATIENT
  Age: 78 Year
  Sex: Male
  Weight: 77.098 kg

DRUGS (46)
  1. IMDUR [Concomitant]
     Dosage: 30 MG, QD
     Route: 048
  2. INDOCIN [Concomitant]
     Dosage: DAILY DOSE 75 MG
     Route: 048
  3. ALEVE [Concomitant]
     Dosage: UNK UNK, PRN
  4. RANITIDINE [Concomitant]
     Dosage: 150 MG, BID
     Route: 048
  5. HEPARIN [Concomitant]
     Dosage: 37000 U, UNK
     Route: 042
     Dates: start: 20060531
  6. AMIODARONE HCL [Concomitant]
     Dosage: TITRATED
     Route: 042
     Dates: start: 20060531
  7. ATENOLOL [Concomitant]
     Dosage: DAILY DOSE 50 MG
     Route: 048
  8. SIMVASTATIN [Concomitant]
     Dosage: DAILY DOSE 80 MG
     Route: 048
  9. FLUOXETINE [Concomitant]
     Dosage: 10 MG, QD
     Route: 048
  10. GALANTAMINE HYDROBROMIDE [Concomitant]
     Dosage: 4 MG, BID
     Route: 048
  11. RED BLOOD CELLS [Concomitant]
     Dosage: 3 U, UNK
     Route: 042
     Dates: start: 20060531
  12. ANCEF [Concomitant]
     Dosage: 1 G, UNK
     Route: 042
     Dates: start: 20060531
  13. HEPARIN [Concomitant]
     Dosage: 10,000 UNITS
     Route: 042
     Dates: start: 20060531
  14. CONTRAST MEDIA [Concomitant]
     Indication: CATHETERISATION CARDIAC
     Dosage: UNK
     Dates: start: 20060526
  15. TRASYLOL [Suspect]
     Dosage: 200 ML, LOADING DOSE
     Route: 042
     Dates: start: 20060531, end: 20060531
  16. AMICAR [Concomitant]
     Indication: CORONARY ARTERY BYPASS
     Dosage: 10 G, UNK
     Dates: start: 20060527, end: 20060527
  17. LASIX [Concomitant]
     Dosage: 40 MG, UNK
     Route: 042
     Dates: start: 20060531
  18. PLATELETS [Concomitant]
     Dosage: 2 U, UNK
     Route: 042
     Dates: start: 20060531
  19. NAPROXEN [Concomitant]
     Dosage: 250 MG, BID
     Route: 048
  20. METOPROLOL TARTRATE [Concomitant]
     Dosage: 25 MG, QD
     Route: 048
  21. MEGESTROL ACETATE [Concomitant]
     Dosage: DAILY DOSE 20 MG
     Route: 048
  22. PLAVIX [Concomitant]
     Dosage: 75 MG, QD
     Route: 048
  23. LEXAPRO [Concomitant]
     Dosage: 10 MG, QD
     Route: 048
  24. ETODOLAC [Concomitant]
     Dosage: 300 MG, BID
     Route: 048
  25. VECURONIUM BROMIDE [Concomitant]
     Dosage: 10 MG, UNK
     Route: 042
     Dates: start: 20060531
  26. PRIMACOR [Concomitant]
     Dosage: TITRATED
     Route: 042
     Dates: start: 20060531
  27. VASOPRESSIN [Concomitant]
     Dosage: TITRATED
     Route: 042
     Dates: start: 20060531
  28. PROTAMINE SULFATE [Concomitant]
     Dosage: 300 MG, UNK
     Route: 042
     Dates: start: 20060531
  29. RED BLOOD CELLS [Concomitant]
     Dosage: 2 U
     Route: 042
     Dates: start: 20060527
  30. ACETYLSALICYLIC ACID SRT [Concomitant]
     Dosage: 81 MG, QD
     Route: 048
  31. IBUPROFEN (ADVIL) [Concomitant]
     Dosage: UNK UNK, PRN
  32. PROZAC [Concomitant]
     Dosage: 10 MG, QD
     Route: 048
  33. LODINE [Concomitant]
     Dosage: 300 MG, QD
     Route: 048
  34. PEPCID [Concomitant]
     Dosage: 20 MG, UNK
     Route: 042
     Dates: start: 20060531
  35. DECADRON [Concomitant]
     Dosage: 16 MG, UNK
     Route: 042
     Dates: start: 20060531
  36. EPINEPHRINE [Concomitant]
     Dosage: TITRATED
     Route: 042
     Dates: start: 20060531
  37. ALBUMIN (HUMAN) [Concomitant]
     Dosage: 200 ML, UNK
     Dates: start: 20060531
  38. FRESH FROZEN PLASMA [Concomitant]
     Dosage: 4 U, UNK
     Route: 042
     Dates: start: 20060531
  39. TRASYLOL [Suspect]
     Indication: THROMBOEMBOLECTOMY
     Dosage: 200 ML CARDIOPULMONARY BYPASS PRIME
     Route: 042
     Dates: start: 20060531, end: 20060531
  40. ZESTRIL [Concomitant]
     Dosage: 20 MG, QD
     Route: 048
  41. PROTONIX [Concomitant]
     Dosage: 40 MG, QD
     Route: 048
  42. ZOCOR [Concomitant]
     Dosage: 40 MG, QD
     Route: 048
  43. OXYBUTYNIN [Concomitant]
     Dosage: 5 MG, TID
     Route: 048
  44. COREG [Concomitant]
     Dosage: 12.5 MG, BID
     Route: 048
  45. VANCOMYCIN HCL [Concomitant]
     Dosage: 1 G, UNK
     Route: 042
     Dates: start: 20060531
  46. BUMEX [Concomitant]
     Dosage: 1 G, UNK
     Route: 042
     Dates: start: 20060531

REACTIONS (13)
  - RENAL INJURY [None]
  - UNEVALUABLE EVENT [None]
  - DEATH [None]
  - RENAL FAILURE [None]
  - STRESS [None]
  - PAIN [None]
  - MULTI-ORGAN FAILURE [None]
  - ANXIETY [None]
  - INJURY [None]
  - RENAL IMPAIRMENT [None]
  - EMOTIONAL DISTRESS [None]
  - FEAR [None]
  - ANHEDONIA [None]
